FAERS Safety Report 8545770-6 (Version None)
Quarter: 2012Q3

REPORT INFORMATION
  Report Type: 
  Country: None (occurrence: None)
  Receive Date: 20120727
  Receipt Date: 20120725
  Transmission Date: 20120928
  Serious: Yes (Death, Hospitalization)
  Sender: FDA-Public Use
  Company Number: US-B.I. PHARMACEUTICALS,INC./RIDGEFIELD-2012-BP-10252BP

PATIENT
  Sex: Female

DRUGS (5)
  1. COUMADIN [Concomitant]
     Indication: ATRIAL FIBRILLATION
  2. MEDICATION NOT OTHER WISE SPECIFIED [Concomitant]
     Indication: URINARY INCONTINENCE
  3. SYNTHROID [Concomitant]
     Indication: THYROID DISORDER
     Route: 048
     Dates: start: 20070101
  4. PRADAXA [Suspect]
     Indication: ATRIAL FIBRILLATION
     Route: 048
  5. ATENOLOL [Concomitant]
     Indication: BLOOD PRESSURE INCREASED
     Dates: start: 20100101

REACTIONS (7)
  - LIP INJURY [None]
  - MALNUTRITION [None]
  - HIP FRACTURE [None]
  - FACIAL BONES FRACTURE [None]
  - TOOTH FRACTURE [None]
  - DEHYDRATION [None]
  - FALL [None]
